FAERS Safety Report 7731471-0 (Version None)
Quarter: 2011Q3

REPORT INFORMATION
  Report Type: 
  Country: None (occurrence: None)
  Receive Date: 20110906
  Receipt Date: 20110603
  Transmission Date: 20111222
  Serious: No
  Sender: FDA-Public Use
  Company Number: US-AMGEN-USASP2011028679

PATIENT
  Age: 74 Year
  Sex: Female

DRUGS (14)
  1. ALLERGY MEDICATION [Concomitant]
     Dosage: UNK
  2. FISH OIL [Concomitant]
     Dosage: 2 MG, UNK
  3. XALATAN [Concomitant]
     Dosage: UNK
  4. VITAMIN C                          /00008001/ [Concomitant]
     Dosage: UNK
  5. VITAMIN D [Concomitant]
     Dosage: 2 IU, UNK
  6. MULTIVITAMIN [Concomitant]
     Dosage: UNK
  7. NORVASC [Concomitant]
     Dosage: UNK
  8. PROLIA [Suspect]
     Indication: OSTEOPOROSIS POSTMENOPAUSAL
     Dosage: UNK
     Dates: start: 20110502
  9. PRED FORTE [Concomitant]
     Dosage: UNK
  10. CALCIUM MAGNESIUM ZINC [Concomitant]
     Dosage: UNK
  11. GLUCOSAMINE [Concomitant]
     Dosage: UNK
  12. DICYCLOMINE [Concomitant]
     Dosage: UNK
  13. TIMOLOL MALEATE [Concomitant]
     Dosage: UNK
  14. VITAMIN B COMPLEX                  /00003501/ [Concomitant]
     Dosage: UNK

REACTIONS (1)
  - EYE INFLAMMATION [None]
